FAERS Safety Report 9813043 (Version 1)
Quarter: 2014Q1

REPORT INFORMATION
  Report Type: Spontaneous
  Country: GB (occurrence: GB)
  Receive Date: 20140113
  Receipt Date: 20140113
  Transmission Date: 20141002
  Serious: Yes (Other)
  Sender: FDA-Public Use
  Company Number: GB-NOVOPROD-396974

PATIENT
  Age: 33 Year
  Sex: Female
  Weight: 85.7 kg

DRUGS (2)
  1. LEVEMIR FLEXPEN [Suspect]
     Indication: DIABETES MELLITUS
     Dosage: 24 U, QD (14 IN THE MORNING AND 10 AT NIGHT)
     Route: 065
     Dates: start: 20131228
  2. HUMALOG [Concomitant]
     Indication: DIABETES MELLITUS
     Dosage: UNK
     Route: 065

REACTIONS (5)
  - Convulsion [Recovered/Resolved]
  - Palpitations [Recovered/Resolved]
  - Blindness transient [Recovered/Resolved]
  - Muscle spasms [Recovered/Resolved]
  - Exposure during pregnancy [Unknown]
